FAERS Safety Report 21066583 (Version 3)
Quarter: 2022Q3

REPORT INFORMATION
  Report Type: Report from Study
  Country: CA (occurrence: CA)
  Receive Date: 20220711
  Receipt Date: 20220815
  Transmission Date: 20221027
  Serious: Yes (Other)
  Sender: FDA-Public Use
  Company Number: CA-GILEAD-2022-0574815

PATIENT
  Sex: Female
  Weight: 87.8 kg

DRUGS (7)
  1. SACITUZUMAB GOVITECAN [Suspect]
     Active Substance: SACITUZUMAB GOVITECAN
     Indication: Triple negative breast cancer
     Dosage: 983 MG
     Route: 042
     Dates: start: 20220311
  2. SACITUZUMAB GOVITECAN [Suspect]
     Active Substance: SACITUZUMAB GOVITECAN
     Dosage: 954 MG (10 MG/KG)
     Route: 042
     Dates: start: 202203
  3. SACITUZUMAB GOVITECAN [Suspect]
     Active Substance: SACITUZUMAB GOVITECAN
     Dosage: 430 MG (5 MG/KG)
     Route: 042
     Dates: start: 202204
  4. SACITUZUMAB GOVITECAN [Suspect]
     Active Substance: SACITUZUMAB GOVITECAN
     Dosage: UNK
     Route: 042
     Dates: start: 20220513
  5. SACITUZUMAB GOVITECAN [Suspect]
     Active Substance: SACITUZUMAB GOVITECAN
     Dosage: 430 MG (5 MG/KG)
     Route: 042
     Dates: start: 20220603
  6. SACITUZUMAB GOVITECAN [Suspect]
     Active Substance: SACITUZUMAB GOVITECAN
     Dosage: 658 MG (7.5 MG/KG), C5D1 AND C5D8
     Route: 042
     Dates: start: 20220624, end: 20220701
  7. SACITUZUMAB GOVITECAN [Suspect]
     Active Substance: SACITUZUMAB GOVITECAN
     Dosage: 658 MG
     Route: 042
     Dates: start: 20220722, end: 20220722

REACTIONS (8)
  - Cytopenia [Unknown]
  - Disease progression [Unknown]
  - Weight decreased [Unknown]
  - Diarrhoea [Unknown]
  - Musculoskeletal chest pain [Unknown]
  - Haematotoxicity [Unknown]
  - Weight fluctuation [Unknown]
  - Fatigue [Unknown]
